FAERS Safety Report 5113203-8 (Version None)
Quarter: 2006Q3

REPORT INFORMATION
  Report Type: 
  Country: None (occurrence: None)
  Receive Date: 20060920
  Receipt Date: 20060831
  Transmission Date: 20061208
  Serious: Yes (Hospitalization)
  Sender: FDA-Public Use
  Company Number: US200607001556

PATIENT
  Age: 35 Year
  Sex: Male
  Weight: 127 kg

DRUGS (3)
  1. ZYPREXA [Suspect]
     Dosage: 5 MG; 10 MG
     Dates: start: 19971113, end: 20030719
  2. RISPERIDONE [Concomitant]
  3. PROLIXIN [Concomitant]

REACTIONS (6)
  - CATHETERISATION CARDIAC [None]
  - DIABETES MELLITUS [None]
  - DIABETIC KETOACIDOSIS [None]
  - HYPERTENSION [None]
  - METABOLIC ACIDOSIS [None]
  - WEIGHT INCREASED [None]
